FAERS Safety Report 9543874 (Version 1)
Quarter: 2013Q3

REPORT INFORMATION
  Report Type: Spontaneous
  Country: JP (occurrence: JP)
  Receive Date: 20130923
  Receipt Date: 20130923
  Transmission Date: 20140515
  Serious: Yes (Other)
  Sender: FDA-Public Use
  Company Number: JP-GLAXOSMITHKLINE-B0923868A

PATIENT
  Sex: Male

DRUGS (5)
  1. FLUTIDE [Suspect]
     Indication: ASTHMA
     Dosage: 100MCG TWICE PER DAY
     Route: 055
     Dates: start: 200805
  2. THEOLONG [Concomitant]
     Indication: ASTHMA
     Dosage: 200MG TWICE PER DAY
     Route: 048
  3. THEOLONG [Concomitant]
     Indication: ASTHMA
     Dosage: 200MG PER DAY
     Route: 048
     Dates: start: 200901
  4. BENZBROMARONE [Concomitant]
     Indication: HYPERURICAEMIA
     Dosage: 50MG PER DAY
     Route: 048
  5. AMLODIPINE [Concomitant]
     Indication: HYPERTENSION
     Dosage: 50MG PER DAY
     Route: 048

REACTIONS (1)
  - Glaucoma [Not Recovered/Not Resolved]
